FAERS Safety Report 4620472-7 (Version None)
Quarter: 2005Q1

REPORT INFORMATION
  Report Type: 
  Country: None (occurrence: None)
  Receive Date: 20050324
  Receipt Date: 20050311
  Transmission Date: 20050727
  Serious: Yes (Hospitalization, Other)
  Sender: FDA-Public Use
  Company Number: KII-2005-0015452

PATIENT
  Age: 21 Year
  Sex: Female

DRUGS (4)
  1. OXYCONTIN [Suspect]
     Dosage: ORAL
     Route: 048
  2. BENZODIAZEPINE DERIVATIVES [Suspect]
     Dosage: ORAL
     Route: 048
  3. ASPIRIN [Suspect]
     Dosage: ORAL
     Route: 048
  4. TETRAHYDROCANNABINOL (TETRAHYDROCANNABINOL) [Suspect]

REACTIONS (8)
  - DRUG ABUSER [None]
  - DYSARTHRIA [None]
  - INTENTIONAL MISUSE [None]
  - LETHARGY [None]
  - OXYGEN SATURATION DECREASED [None]
  - SOMNOLENCE [None]
  - SUICIDE ATTEMPT [None]
  - VOMITING [None]
